FAERS Safety Report 7562497-8 (Version None)
Quarter: 2011Q2

REPORT INFORMATION
  Report Type: 
  Country: None (occurrence: None)
  Receive Date: 20110614
  Receipt Date: 20110607
  Transmission Date: 20111010
  Serious: Yes (Other)
  Sender: FDA-Public Use
  Company Number: 2011SP026389

PATIENT
  Sex: Male
  Weight: 2.268 kg

DRUGS (2)
  1. PEGINTERFERON ALFA-2B [Suspect]
     Indication: MATERNAL DRUGS AFFECTING FOETUS
     Dosage: TRPL
     Route: 064
  2. RIBAVIRIN [Suspect]
     Indication: MATERNAL DRUGS AFFECTING FOETUS
     Dosage: TRPL
     Route: 064

REACTIONS (8)
  - JAUNDICE [None]
  - HAEMOGLOBIN DECREASED [None]
  - PREMATURE BABY [None]
  - UMBILICAL CORD ABNORMALITY [None]
  - MATERNAL DRUGS AFFECTING FOETUS [None]
  - VARICOSE VEIN [None]
  - SMALL FOR DATES BABY [None]
  - CAESAREAN SECTION [None]
